FAERS Safety Report 5251798-4 (Version None)
Quarter: 2007Q1

REPORT INFORMATION
  Report Type: 
  Country: None (occurrence: None)
  Receive Date: 20070223
  Receipt Date: 20070219
  Transmission Date: 20070707
  Serious: Yes (Other)
  Sender: FDA-Public Use
  Company Number: 153114USA

PATIENT
  Age: 30 Year
  Sex: Female

DRUGS (5)
  1. COPAXONE [Suspect]
     Indication: MULTIPLE SCLEROSIS
     Dosage: (20 MG), SUBCUTANEOUS
     Route: 058
     Dates: start: 20070101, end: 20070219
  2. NIFEDIPINE [Concomitant]
  3. DYAZIDE [Concomitant]
  4. LISINOPRIL [Concomitant]
  5. LABETALOL HCL [Concomitant]

REACTIONS (4)
  - CYANOSIS [None]
  - EMBOLISM [None]
  - ISCHAEMIA [None]
  - PAIN IN EXTREMITY [None]
